FAERS Safety Report 7335170-9 (Version None)
Quarter: 2011Q1

REPORT INFORMATION
  Report Type: 
  Country: None (occurrence: None)
  Receive Date: 20110302
  Receipt Date: 20110302
  Transmission Date: 20110831
  Serious: No
  Sender: FDA-Public Use
  Company Number: None

PATIENT
  Sex: Female
  Weight: 53.978 kg

DRUGS (1)
  1. NITROFUR GENERIC FO MACROBID [Suspect]
     Indication: URINARY TRACT INFECTION
     Dosage: ONE CAPSULE BY MOUTH TWICE A DAY MOUTH
     Route: 048
     Dates: start: 20110211

REACTIONS (2)
  - STOMATITIS [None]
  - LIP SWELLING [None]
